FAERS Safety Report 21050290 (Version 8)
Quarter: 2023Q1

REPORT INFORMATION
  Report Type: Report from Study
  Country: AR (occurrence: AR)
  Receive Date: 20220707
  Receipt Date: 20230227
  Transmission Date: 20230417
  Serious: Yes (Hospitalization)
  Sender: FDA-Public Use
  Company Number: AR-AMGEN-ARGCT2022114672

PATIENT
  Age: 7 Year
  Sex: Male

DRUGS (9)
  1. CARFILZOMIB [Suspect]
     Active Substance: CARFILZOMIB
     Indication: Acute lymphocytic leukaemia
     Dosage: 44.8 MILLIGRAM
     Route: 042
     Dates: start: 20220607
  2. VINCRISTINE [Suspect]
     Active Substance: VINCRISTINE
     Indication: Acute lymphocytic leukaemia
     Dosage: 1.2 MILLIGRAM
     Route: 065
     Dates: start: 20220607, end: 20220614
  3. DAUNORUBICIN [Suspect]
     Active Substance: DAUNORUBICIN
     Indication: Acute lymphocytic leukaemia
     Dosage: 20 MILLIGRAM
     Route: 065
     Dates: start: 20220607
  4. DEXAMETHASONE [Concomitant]
     Active Substance: DEXAMETHASONE
     Indication: Acute lymphocytic leukaemia
     Dosage: 2.4 MILLIGRAM
     Route: 037
     Dates: start: 20220607
  5. OMEPRAZOLE [Concomitant]
     Active Substance: OMEPRAZOLE
     Dosage: 20 MILLIGRAM
     Route: 048
     Dates: start: 20220605, end: 20220822
  6. CYTARABINE [Concomitant]
     Active Substance: CYTARABINE
     Dosage: 24 MILLIGRAM
     Route: 037
     Dates: start: 20220607
  7. HYDROCORTISONE [Concomitant]
     Active Substance: HYDROCORTISONE
     Dosage: 12 MILLIGRAM
     Route: 037
     Dates: start: 20220607, end: 20220607
  8. METHOTREXATE [Concomitant]
     Active Substance: METHOTREXATE
     Dosage: 12 MILLIGRAM
     Route: 037
     Dates: start: 20220607, end: 20220607
  9. DOXORUBICIN [Concomitant]
     Active Substance: DOXORUBICIN
     Dosage: 1 MILLIGRAM
     Dates: start: 20220614, end: 20220614

REACTIONS (1)
  - Febrile neutropenia [Recovered/Resolved]

NARRATIVE: CASE EVENT DATE: 20220702
